FAERS Safety Report 6286641-8 (Version None)
Quarter: 2009Q3

REPORT INFORMATION
  Report Type: 
  Country: None (occurrence: None)
  Receive Date: 20090728
  Receipt Date: 20090717
  Transmission Date: 20100115
  Serious: Yes (Other)
  Sender: FDA-Public Use
  Company Number: PHHY2009FR28124

PATIENT
  Age: 69 Year
  Sex: Female
  Weight: 50 kg

DRUGS (4)
  1. ACLASTA [Suspect]
     Indication: OSTEOPOROSIS
     Dosage: UNK
     Dates: start: 20090703
  2. ADVIL [Concomitant]
     Dosage: 400 1 DF DAILY
  3. RIVOTRIL [Concomitant]
     Indication: SCIATICA
     Dosage: 2 MG,  0.5 DF IN THE EVENING
  4. RIVOTRIL [Concomitant]
     Dosage: 0.5 MG, QD

REACTIONS (7)
  - CHILLS [None]
  - FATIGUE [None]
  - GAIT DISTURBANCE [None]
  - MUSCULOSKELETAL STIFFNESS [None]
  - MYALGIA [None]
  - PYREXIA [None]
  - VISION BLURRED [None]
